FAERS Safety Report 8254831-0 (Version None)
Quarter: 2012Q1

REPORT INFORMATION
  Report Type: 
  Country: None (occurrence: None)
  Receive Date: 20120322
  Receipt Date: 20111220
  Transmission Date: 20120608
  Serious: Yes (Hospitalization)
  Sender: FDA-Public Use
  Company Number: UTC-013769

PATIENT
  Age: 49 Year
  Sex: Female
  Weight: 87.54 kg

DRUGS (6)
  1. DIURETICS (DIURETICS) [Concomitant]
  2. REVATIO [Concomitant]
  3. TYVASO [Suspect]
     Indication: COR PULMONALE CHRONIC
     Dosage: 6-54 MICROGRAMS (4 IN 1 D), INHALATION
     Route: 055
     Dates: start: 20111125
  4. TYVASO [Suspect]
     Indication: HEART DISEASE CONGENITAL
     Dosage: 6-54 MICROGRAMS (4 IN 1 D), INHALATION
     Route: 055
     Dates: start: 20111125
  5. LETAIRIS [Concomitant]
  6. COUMADIN [Concomitant]

REACTIONS (2)
  - COUGH [None]
  - TACHYCARDIA [None]
